FAERS Safety Report 10959011 (Version 1)
Quarter: 2015Q1

REPORT INFORMATION
  Report Type: Spontaneous
  Country: US (occurrence: US)
  Receive Date: 20150327
  Receipt Date: 20150327
  Transmission Date: 20150721
  Serious: Yes (Death)
  Sender: FDA-Public Use
  Company Number: US-CIPLA LTD.-2015US02297

PATIENT

DRUGS (4)
  1. DULOXETINE [Suspect]
     Active Substance: DULOXETINE
  2. TRAMADOL [Suspect]
     Active Substance: TRAMADOL
  3. CITALOPRAM [Suspect]
     Active Substance: CITALOPRAM HYDROBROMIDE
  4. DIPHENHYDRAMINE [Suspect]
     Active Substance: DIPHENHYDRAMINE

REACTIONS (1)
  - Completed suicide [Fatal]
